FAERS Safety Report 23516648 (Version 1)
Quarter: 2024Q1

REPORT INFORMATION
  Report Type: Spontaneous
  Country: US (occurrence: None)
  Receive Date: 20240212
  Receipt Date: 20240212
  Transmission Date: 20240409
  Serious: Yes (Disabling)
  Sender: FDA-Public Use
  Company Number: None

PATIENT
  Age: 73 Year
  Sex: Female
  Weight: 50.4 kg

DRUGS (4)
  1. CIPRO [Suspect]
     Active Substance: CIPROFLOXACIN HYDROCHLORIDE
     Indication: Urinary tract infection
     Dosage: OTHER QUANTITY : 10 TABLET(S);?FREQUENCY : TWICE A DAY;?
     Route: 048
     Dates: start: 20230705, end: 20230710
  2. LORAZEPAM [Concomitant]
     Active Substance: LORAZEPAM
  3. MAGNESIUM GLYCINATE [Concomitant]
     Active Substance: MAGNESIUM GLYCINATE
  4. Ubiquinol (CoQ10) [Concomitant]

REACTIONS (12)
  - Arthralgia [None]
  - Muscle spasms [None]
  - Muscle spasms [None]
  - Back pain [None]
  - Anxiety [None]
  - Insomnia [None]
  - Palpitations [None]
  - Depression [None]
  - Abdominal discomfort [None]
  - Diarrhoea [None]
  - Groin pain [None]
  - Muscle strain [None]

NARRATIVE: CASE EVENT DATE: 20230901
